FAERS Safety Report 6611296-X (Version None)
Quarter: 2010Q1

REPORT INFORMATION
  Report Type: 
  Country: None (occurrence: None)
  Receive Date: 20100302
  Receipt Date: 20100302
  Transmission Date: 20100710
  Serious: Yes (Hospitalization)
  Sender: FDA-Public Use
  Company Number: None

PATIENT
  Age: 86 Year
  Sex: Female
  Weight: 55 kg

DRUGS (18)
  1. ASPIRIN [Suspect]
     Indication: CORONARY ARTERY DISEASE
     Dosage: 81 MG DAILY PO CHRONIC
     Route: 048
  2. COUMADIN [Suspect]
     Indication: CORONARY ARTERY DISEASE
     Dosage: 3 MG DAILY PO CHRONIC
     Route: 048
  3. SYNTHROID [Concomitant]
  4. BENAZEPRIL HYDROCHLORIDE [Concomitant]
  5. AMIODARONE HCL [Concomitant]
  6. LASIX [Concomitant]
  7. COREG [Concomitant]
  8. DIGOXIN [Concomitant]
  9. PRAVACHOL [Concomitant]
  10. LYRICA [Concomitant]
  11. CALCIUM/D [Concomitant]
  12. M.V.I. [Concomitant]
  13. TYLENOL-500 [Concomitant]
  14. IMODIUM [Concomitant]
  15. MAALOX [Concomitant]
  16. ZANTAC [Concomitant]
  17. ALDACTONE [Concomitant]
  18. SENNA [Concomitant]

REACTIONS (4)
  - COLITIS [None]
  - DIVERTICULUM [None]
  - RECTAL HAEMORRHAGE [None]
  - URINARY TRACT INFECTION [None]
